FAERS Safety Report 5528090-3 (Version None)
Quarter: 2007Q4

REPORT INFORMATION
  Report Type: 
  Country: None (occurrence: None)
  Receive Date: 20071128
  Receipt Date: 20071114
  Transmission Date: 20080405
  Serious: Yes (Death)
  Sender: FDA-Public Use
  Company Number: FI-RANBAXY-2007RR-11471

PATIENT

DRUGS (2)
  1. ATORVASTATIN CALCIUM [Suspect]
     Dosage: 40 MG, QD
  2. FLUCONAZOLE [Suspect]
     Dosage: 150 MG, QD
     Route: 048

REACTIONS (3)
  - DRUG INTERACTION [None]
  - MULTI-ORGAN FAILURE [None]
  - RHABDOMYOLYSIS [None]
